FAERS Safety Report 15603151 (Version 1)
Quarter: 2018Q4

REPORT INFORMATION
  Report Type: Spontaneous
  Country: US (occurrence: US)
  Receive Date: 20181109
  Receipt Date: 20181109
  Transmission Date: 20190205
  Serious: Yes (Hospitalization)
  Sender: FDA-Public Use
  Company Number: None

PATIENT
  Age: 63 Year
  Sex: Female

DRUGS (21)
  1. LOVENOX [Concomitant]
     Active Substance: ENOXAPARIN SODIUM
  2. B COMPLX [Concomitant]
  3. FAMOTIDINE 20MG [Concomitant]
     Active Substance: FAMOTIDINE
  4. IBUPROFEN 200MG [Concomitant]
     Active Substance: IBUPROFEN
  5. QUERCETIN 250MG [Concomitant]
  6. MILK THISTLE CAP 250MG [Concomitant]
  7. CYMBALTA [Concomitant]
     Active Substance: DULOXETINE HYDROCHLORIDE
  8. MEDROL 32MG [Concomitant]
  9. NETTLE LEAF CAP 435MG [Concomitant]
  10. AFINITOR [Suspect]
     Active Substance: EVEROLIMUS
     Indication: NEUROENDOCRINE TUMOUR
     Route: 048
     Dates: start: 20180213
  11. CREON 24000UNIT [Concomitant]
  12. LIDODERM [Concomitant]
     Active Substance: LIDOCAINE
  13. DILAUDID 2MG [Concomitant]
  14. LOSARTAN 25MG [Concomitant]
     Active Substance: LOSARTAN
  15. CORTISOL [Concomitant]
     Active Substance: HYDROCORTISONE
  16. GLIPIZIDE 5MG [Concomitant]
     Active Substance: GLIPIZIDE
  17. LEVEMIR [Concomitant]
     Active Substance: INSULIN DETEMIR
  18. ONDANSERTRON 4MG [Concomitant]
  19. ALBUTEROL 0.083% [Concomitant]
  20. PROAIR HFA [Concomitant]
     Active Substance: ALBUTEROL SULFATE
  21. VITAMIN D 50000UNIT [Concomitant]

REACTIONS (3)
  - Memory impairment [None]
  - Pulmonary embolism [None]
  - Product dose omission [None]

NARRATIVE: CASE EVENT DATE: 20181101
